FAERS Safety Report 15097942 (Version 3)
Quarter: 2018Q3

REPORT INFORMATION
  Report Type: Report from Study
  Country: UA (occurrence: UA)
  Receive Date: 20180702
  Receipt Date: 20180712
  Transmission Date: 20181010
  Serious: Yes (Other)
  Sender: FDA-Public Use
  Company Number: UA-PFIZER INC-2018264459

PATIENT
  Age: 48 Year
  Sex: Female

DRUGS (4)
  1. MILDRONATE [Concomitant]
     Active Substance: MELDONIUM
     Dosage: UNK
  2. NEUROVITAN [Concomitant]
     Active Substance: VITAMINS
     Dosage: UNK
  3. RAMIPRIL. [Suspect]
     Active Substance: RAMIPRIL
     Indication: HYPERTENSION
     Dosage: 5 MG, 1X/DAY
     Route: 065
     Dates: start: 201710
  4. CORVALOL [Concomitant]
     Active Substance: BROMISOVAL\PHENOBARBITAL SODIUM
     Dosage: UNK

REACTIONS (6)
  - Nausea [Recovered/Resolved]
  - Gastrointestinal disorder [Recovered/Resolved]
  - Dry mouth [Recovered/Resolved]
  - Drug dependence [Unknown]
  - Therapy non-responder [Unknown]
  - Drug tolerance [Unknown]

NARRATIVE: CASE EVENT DATE: 2017
